FAERS Safety Report 6740482-3 (Version None)
Quarter: 2010Q2

REPORT INFORMATION
  Report Type: 
  Country: None (occurrence: None)
  Receive Date: 20100525
  Receipt Date: 20100521
  Transmission Date: 20101027
  Serious: Yes (Other)
  Sender: FDA-Public Use
  Company Number: DE-WYE-G06062410

PATIENT
  Sex: Male
  Weight: 98 kg

DRUGS (3)
  1. TREVILOR RETARD [Suspect]
     Indication: DEPRESSION
     Route: 048
     Dates: start: 20081101
  2. BISOPROLOL [Concomitant]
     Indication: HYPERTENSION
     Route: 048
     Dates: start: 20080701
  3. RAMIPRIL [Concomitant]
     Indication: HYPERTENSION
     Route: 048
     Dates: start: 20081001

REACTIONS (2)
  - HAEMORRHAGIC DIATHESIS [None]
  - THROMBOCYTOPENIA [None]
